FAERS Safety Report 7873346 (Version 3)
Quarter: 2014Q1

REPORT INFORMATION
  Report Type: Spontaneous
  Country: JP (occurrence: JP)
  Receive Date: 20110328
  Receipt Date: 20140303
  Transmission Date: 20141002
  Serious: Yes (Death, Other)
  Sender: FDA-Public Use
  Company Number: JP-ASTELLAS-2011JP001964

PATIENT
  Age: 10 Year
  Sex: Male

DRUGS (10)
  1. PROGRAF [Suspect]
     Indication: PROPHYLAXIS AGAINST GRAFT VERSUS HOST DISEASE
     Dosage: UNK
     Route: 041
     Dates: start: 200809
  2. METHOTREXATE [Concomitant]
     Indication: PROPHYLAXIS AGAINST GRAFT VERSUS HOST DISEASE
     Dosage: 15 MG/M2, UNKNOWN/D
     Route: 065
     Dates: start: 20080917, end: 20080917
  3. METHOTREXATE [Concomitant]
     Dosage: 10 MG/M2, UNKNOWN/D
     Route: 065
     Dates: start: 20080919, end: 20080919
  4. METHOTREXATE [Concomitant]
     Dosage: 10 MG/M2, UNKNOWN/D
     Route: 065
     Dates: start: 20080922, end: 20080922
  5. METHOTREXATE [Concomitant]
     Dosage: 10 MG/M2, UNKNOWN/D
     Route: 065
     Dates: start: 20080927, end: 20080927
  6. MELPHALAN [Concomitant]
     Indication: PREMEDICATION
     Dosage: UNK
     Route: 065
     Dates: start: 200809
  7. CEPHEM ANTIBIOTIC [Concomitant]
     Indication: PROPHYLAXIS
     Dosage: UNK
     Route: 065
     Dates: start: 200809
  8. ANTIFUNGAL DRUG [Concomitant]
     Indication: PROPHYLAXIS
     Dosage: UNK
     Route: 065
     Dates: start: 200809
  9. GRANULOCYTE COLONY-STIMULATING FACTOR NOS [Concomitant]
     Dosage: UNK
     Route: 065
     Dates: start: 20080921
  10. CANDESARTAN CILEXETIL [Concomitant]
     Indication: PROPHYLAXIS
     Dosage: UNK
     Route: 048
     Dates: start: 2008

REACTIONS (4)
  - Drug ineffective [Unknown]
  - Acute graft versus host disease [Fatal]
  - Chronic graft versus host disease [Unknown]
  - Staphylococcal sepsis [Fatal]
